FAERS Safety Report 4487345-4 (Version None)
Quarter: 2004Q4

REPORT INFORMATION
  Report Type: 
  Country: None (occurrence: None)
  Receive Date: 20041027
  Receipt Date: 20041020
  Transmission Date: 20050328
  Serious: Yes (Other)
  Sender: FDA-Public Use
  Company Number: JP-MERCK-0410USA03205

PATIENT
  Age: 82 Year
  Sex: Female

DRUGS (5)
  1. FOSAMAX [Suspect]
     Indication: OSTEOPOROSIS
     Route: 048
     Dates: start: 20040804, end: 20040809
  2. LOSARTAN POTASSIUM [Concomitant]
     Indication: HYPERTENSION
     Route: 048
     Dates: start: 20030908
  3. NORVASC [Concomitant]
     Indication: HYPERTENSION
     Route: 048
     Dates: start: 20030908
  4. LASIX [Concomitant]
     Indication: HYPERTENSION
     Route: 048
     Dates: start: 20030908
  5. TOLEDOMIN [Concomitant]
     Indication: ANXIETY DISORDER
     Route: 048
     Dates: start: 20030908

REACTIONS (1)
  - DRUG ERUPTION [None]
